FAERS Safety Report 8344270-6 (Version None)
Quarter: 2012Q2

REPORT INFORMATION
  Report Type: 
  Country: None (occurrence: None)
  Receive Date: 20120508
  Receipt Date: 20080910
  Transmission Date: 20120825
  Serious: No
  Sender: FDA-Public Use
  Company Number: US-TEVA-US024590

PATIENT
  Sex: Male
  Weight: 93 kg

DRUGS (6)
  1. TREANDA [Suspect]
     Indication: CHRONIC LYMPHOCYTIC LEUKAEMIA
     Dosage: 151 MILLIGRAM;
     Route: 042
     Dates: start: 20080908
  2. ASPIRIN [Concomitant]
     Dosage: 81 MG
     Route: 048
  3. SYNTHROID [Concomitant]
     Route: 048
  4. LIPITOR [Concomitant]
     Route: 048
  5. CYMBALTA [Concomitant]
     Route: 065
  6. AVAPRO [Concomitant]
     Dosage: 300 MG
     Route: 048

REACTIONS (1)
  - BLOOD CREATININE INCREASED [None]
